FAERS Safety Report 25589916 (Version 2)
Quarter: 2025Q3

REPORT INFORMATION
  Report Type: Spontaneous
  Country: US (occurrence: US)
  Receive Date: 20250722
  Receipt Date: 20250825
  Transmission Date: 20251021
  Serious: No
  Sender: ROCHE
  Company Number: US-ROCHE-10000342347

PATIENT
  Sex: Female

DRUGS (7)
  1. RITUXIMAB [Suspect]
     Active Substance: RITUXIMAB
     Indication: Dermatomyositis
     Route: 065
  2. METHOTREXATE [Concomitant]
     Active Substance: METHOTREXATE
  3. MYCOPHENOLIC ACID [Concomitant]
     Active Substance: MYCOPHENOLIC ACID
  4. HYDROXYCHLOROQUINE [Concomitant]
     Active Substance: HYDROXYCHLOROQUINE
  5. PREDNISONE [Concomitant]
     Active Substance: PREDNISONE
  6. CYCLOSPORINE [Concomitant]
     Active Substance: CYCLOSPORINE
  7. ANIFROLUMAB [Concomitant]
     Active Substance: ANIFROLUMAB

REACTIONS (2)
  - Off label use [Unknown]
  - No adverse event [Unknown]
